FAERS Safety Report 11012597 (Version 1)
Quarter: 2015Q2

REPORT INFORMATION
  Report Type: Spontaneous
  Country: None (occurrence: None)
  Receive Date: 20150410
  Receipt Date: 20150410
  Transmission Date: 20150821
  Serious: Yes (Other)
  Sender: FDA-Public Use
  Company Number: None

PATIENT
  Age: 38 Year
  Sex: Female
  Weight: 50.35 kg

DRUGS (1)
  1. REFRESH TEARS LUBRICANT [Suspect]
     Active Substance: CARBOXYMETHYLCELLULOSE SODIUM
     Indication: DRY EYE
     Dosage: INTO THE EYE
     Dates: start: 20150405, end: 20150405

REACTIONS (3)
  - Visual impairment [None]
  - Vision blurred [None]
  - Pupils unequal [None]

NARRATIVE: CASE EVENT DATE: 20150405
